FAERS Safety Report 21739499 (Version 2)
Quarter: 2022Q4

REPORT INFORMATION
  Report Type: Spontaneous
  Country: FR (occurrence: FR)
  Receive Date: 20221216
  Receipt Date: 20221219
  Transmission Date: 20230112
  Serious: Yes (Death, Other)
  Sender: FDA-Public Use
  Company Number: FR-BRISTOL-MYERS SQUIBB COMPANY-2022-150322

PATIENT
  Age: 71 Year

DRUGS (2)
  1. NULOJIX [Suspect]
     Active Substance: BELATACEPT
     Indication: Product used for unknown indication
  2. NULOJIX [Suspect]
     Active Substance: BELATACEPT

REACTIONS (1)
  - Death [Fatal]
